FAERS Safety Report 24767203 (Version 1)
Quarter: 2024Q4

REPORT INFORMATION
  Report Type: Spontaneous
  Country: US (occurrence: None)
  Receive Date: 20241220
  Receipt Date: 20241220
  Transmission Date: 20250114
  Serious: Yes (Other)
  Sender: Public
  Company Number: None

PATIENT
  Age: 21 Year
  Sex: Female
  Weight: 65.7 kg

DRUGS (4)
  1. DUPIXENT [Suspect]
     Active Substance: DUPILUMAB
     Indication: Dermatitis atopic
     Dosage: 300 MG EVEY  WEEKS SUBCUTANEOUS?
     Route: 058
  2. Mometasone Furoate suspension [Concomitant]
  3. Blisovi 24 FE 1 [Concomitant]
  4. Fluocinonide 0.05% solution [Concomitant]

REACTIONS (6)
  - Dry eye [None]
  - Ocular hyperaemia [None]
  - Eye pruritus [None]
  - Eye pain [None]
  - Eyelid margin crusting [None]
  - Drug ineffective [None]
